FAERS Safety Report 5916631-3 (Version None)
Quarter: 2008Q4

REPORT INFORMATION
  Report Type: 
  Country: None (occurrence: None)
  Receive Date: 20081013
  Receipt Date: 20081006
  Transmission Date: 20090506
  Serious: Yes (Other)
  Sender: FDA-Public Use
  Company Number: GB-PURDUE-GBR_2008_0004499

PATIENT
  Age: 44 Year
  Sex: Female

DRUGS (1)
  1. OXYNORM [Suspect]
     Indication: SCIATICA
     Dosage: 1 DF, QID
     Route: 065
     Dates: start: 20080602, end: 20081004

REACTIONS (7)
  - ASTHENIA [None]
  - BLINDNESS [None]
  - DYSPHAGIA [None]
  - EYELID FUNCTION DISORDER [None]
  - FEELING ABNORMAL [None]
  - HYPOTONIA [None]
  - RESPIRATORY DISORDER [None]
